FAERS Safety Report 16930975 (Version 2)
Quarter: 2019Q4

REPORT INFORMATION
  Report Type: Spontaneous
  Country: US (occurrence: US)
  Receive Date: 20191017
  Receipt Date: 20191212
  Transmission Date: 20200122
  Serious: Yes (Hospitalization, Other)
  Sender: FDA-Public Use
  Company Number: US-ROCHE-2435285

PATIENT
  Sex: Male
  Weight: 77.18 kg

DRUGS (6)
  1. ZOLPIDEM [Concomitant]
     Active Substance: ZOLPIDEM TARTRATE
     Route: 065
     Dates: start: 2006
  2. VALIUM [Suspect]
     Active Substance: DIAZEPAM
     Indication: MUSCLE SPASMS
     Dosage: ONGOING; YES
     Route: 048
     Dates: start: 2008
  3. BACLOFEN. [Concomitant]
     Active Substance: BACLOFEN
     Indication: MUSCLE SPASTICITY
     Route: 048
     Dates: start: 2006
  4. CORTISONE [Concomitant]
     Active Substance: CORTISONE
  5. OCREVUS [Suspect]
     Active Substance: OCRELIZUMAB
     Indication: RELAPSING-REMITTING MULTIPLE SCLEROSIS
     Dosage: ONGOING; UNKNOWN
     Route: 042
     Dates: start: 201610
  6. OCREVUS [Suspect]
     Active Substance: OCRELIZUMAB
     Route: 042
     Dates: start: 2017

REACTIONS (19)
  - Multiple sclerosis relapse [Recovered/Resolved]
  - Skin abrasion [Recovered/Resolved]
  - Skin disorder [Unknown]
  - Staphylococcus test positive [Unknown]
  - Depression [Not Recovered/Not Resolved]
  - Pain [Unknown]
  - Fall [Unknown]
  - Septic arthritis staphylococcal [Unknown]
  - Magnetic resonance imaging abnormal [Unknown]
  - Intervertebral disc protrusion [Unknown]
  - Cognitive disorder [Not Recovered/Not Resolved]
  - White blood cell count increased [Unknown]
  - Swelling [Recovered/Resolved]
  - Peripheral swelling [Recovered/Resolved]
  - Urinary tract infection [Unknown]
  - Muscular weakness [Not Recovered/Not Resolved]
  - Immunodeficiency [Unknown]
  - Arthritis infective [Recovered/Resolved]
  - Infection [Recovered/Resolved]

NARRATIVE: CASE EVENT DATE: 2010
